FAERS Safety Report 9772020 (Version 1)
Quarter: 2013Q4

REPORT INFORMATION
  Report Type: Spontaneous
  Country: JP (occurrence: JP)
  Receive Date: 20131219
  Receipt Date: 20131219
  Transmission Date: 20140711
  Serious: Yes (Hospitalization, Other)
  Sender: FDA-Public Use
  Company Number: JP-ROCHE-1319527

PATIENT
  Age: 65 Year
  Sex: Female

DRUGS (7)
  1. ACTEMRA [Suspect]
     Indication: RHEUMATOID ARTHRITIS
     Dosage: DOSAGE IS UNCERTAIN.
     Route: 058
     Dates: start: 20130610, end: 20131015
  2. GLACTIV [Concomitant]
     Indication: DIABETES MELLITUS
     Route: 048
  3. BLOPRESS [Concomitant]
     Indication: HYPERTENSION
     Route: 048
  4. AMLODIN [Concomitant]
     Indication: HYPERTENSION
     Route: 048
  5. INTEBAN [Concomitant]
     Indication: RHEUMATOID ARTHRITIS
     Dosage: DRUG REPORTED A INTEBAN SP
     Route: 048
  6. OMEPRAZOLE [Concomitant]
     Indication: PROPHYLAXIS
     Route: 048
  7. ALMARL [Concomitant]
     Indication: HYPERTENSION
     Route: 048

REACTIONS (2)
  - Sepsis [Not Recovered/Not Resolved]
  - Back pain [Unknown]
